FAERS Safety Report 15803170 (Version 2)
Quarter: 2019Q1

REPORT INFORMATION
  Report Type: Spontaneous
  Country: US (occurrence: US)
  Receive Date: 20190109
  Receipt Date: 20190128
  Transmission Date: 20190417
  Serious: No
  Sender: FDA-Public Use
  Company Number: US-BIOMARINAP-US-2019-121356

PATIENT
  Sex: Female
  Weight: 21 kg

DRUGS (3)
  1. VIMIZIM [Suspect]
     Active Substance: ELOSULFASE ALFA
     Indication: MUCOPOLYSACCHARIDOSIS IV
     Dosage: 65 MILLIGRAM, QW
     Route: 065
     Dates: start: 20181011
  2. VIMIZIM [Suspect]
     Active Substance: ELOSULFASE ALFA
     Dosage: UNK UNK, QW
     Route: 065
     Dates: start: 201407
  3. ALBUTEROL                          /00139501/ [Concomitant]
     Active Substance: ALBUTEROL
     Indication: PRODUCT USED FOR UNKNOWN INDICATION

REACTIONS (7)
  - Arthralgia [Unknown]
  - Balance disorder [Unknown]
  - Arthropathy [Unknown]
  - Pain in extremity [Unknown]
  - Muscular weakness [Unknown]
  - Back pain [Unknown]
  - Limb asymmetry [Unknown]

NARRATIVE: CASE EVENT DATE: 2018
